FAERS Safety Report 5106422-8 (Version None)
Quarter: 2006Q3

REPORT INFORMATION
  Report Type: 
  Country: None (occurrence: None)
  Receive Date: 20060918
  Receipt Date: 20060913
  Transmission Date: 20061208
  Serious: Yes (Death)
  Sender: FDA-Public Use
  Company Number: 2006AP04276

PATIENT
  Age: 70 Year
  Sex: Female

DRUGS (3)
  1. IRESSA [Suspect]
     Indication: LUNG NEOPLASM MALIGNANT
     Route: 048
  2. CARBOPLATIN [Concomitant]
     Dosage: 5 COURSES
  3. DOCETAXEL [Concomitant]
     Dosage: 5 COURSES

REACTIONS (1)
  - ACUTE RESPIRATORY FAILURE [None]
